FAERS Safety Report 24862701 (Version 2)
Quarter: 2025Q1

REPORT INFORMATION
  Report Type: Spontaneous
  Country: RO (occurrence: RO)
  Receive Date: 20250120
  Receipt Date: 20250221
  Transmission Date: 20250409
  Serious: Yes (Life-Threatening, Hospitalization, Disabling, Other)
  Sender: JOHNSON AND JOHNSON
  Company Number: None

PATIENT
  Age: 40 Year
  Sex: Male

DRUGS (1)
  1. RISPERIDONE [Suspect]
     Active Substance: RISPERIDONE
     Indication: Schizophrenia
     Dosage: ACCORDING TO THE RAPPORTEUR, THE INITIAL DOSE ADMINISTERED WAS 4 ML PER DAY, THEN AFTER 2 WEEKS THE
     Route: 048
     Dates: start: 20240708, end: 20240814

REACTIONS (6)
  - Suicidal ideation [Recovering/Resolving]
  - Embolism [Unknown]
  - Visual impairment [Unknown]
  - Dizziness [Recovered/Resolved]
  - Fear [Recovered/Resolved]
  - Feeling of despair [Recovered/Resolved]

NARRATIVE: CASE EVENT DATE: 20240801
